FAERS Safety Report 8151912-7 (Version None)
Quarter: 2012Q1

REPORT INFORMATION
  Report Type: 
  Country: None (occurrence: None)
  Receive Date: 20120221
  Receipt Date: 20120215
  Transmission Date: 20120608
  Serious: No
  Sender: FDA-Public Use
  Company Number: US-PFIZER INC-2012041296

PATIENT
  Sex: Female
  Weight: 101.13 kg

DRUGS (7)
  1. METFORMIN [Concomitant]
     Indication: DIABETES MELLITUS
     Dosage: UNK
  2. LYRICA [Suspect]
     Indication: BACK PAIN
  3. FISH OIL [Concomitant]
     Dosage: UNK
  4. METOPROLOL [Concomitant]
     Dosage: UNK
  5. LYRICA [Suspect]
     Indication: MUSCULOSKELETAL PAIN
     Dosage: 50 MG, 1X/DAY
     Route: 048
     Dates: start: 20120212
  6. LYRICA [Suspect]
     Indication: NECK PAIN
  7. SYNTHROID [Concomitant]
     Indication: HYPOTHYROIDISM
     Dosage: UNK

REACTIONS (1)
  - MUSCLE SPASMS [None]
